FAERS Safety Report 16873393 (Version 9)
Quarter: 2020Q2

REPORT INFORMATION
  Report Type: Spontaneous
  Country: US (occurrence: US)
  Receive Date: 20191001
  Receipt Date: 20200514
  Transmission Date: 20200713
  Serious: No
  Sender: FDA-Public Use
  Company Number: US-PFIZER INC-2019423796

PATIENT
  Age: 39 Year
  Sex: Female
  Weight: 62.14 kg

DRUGS (1)
  1. RELPAX [Suspect]
     Active Substance: ELETRIPTAN HYDROBROMIDE
     Indication: MIGRAINE
     Dosage: 40 MG, AS NEEDED (TAKE ONE TABLET AT ONSET OF MIGRAINE; MAY REPEAT X1 IN 2 HOURS IF NEEDED, MAX 2/24
     Route: 048

REACTIONS (2)
  - Expired product administered [Unknown]
  - Dysphagia [Unknown]
